FAERS Safety Report 4806160-2 (Version None)
Quarter: 2005Q4

REPORT INFORMATION
  Report Type: 
  Country: None (occurrence: None)
  Receive Date: 20051021
  Receipt Date: 20051010
  Transmission Date: 20060501
  Serious: Yes (Other)
  Sender: FDA-Public Use
  Company Number: GB-BRISTOL-MYERS SQUIBB COMPANY-13143987

PATIENT
  Age: 70 Year
  Sex: Male

DRUGS (5)
  1. METFORMIN HCL [Suspect]
     Indication: DIABETES MELLITUS
     Route: 048
     Dates: start: 20050722, end: 20050729
  2. DIGOXIN [Concomitant]
     Route: 048
     Dates: start: 20011204
  3. TAMSULOSIN [Concomitant]
     Route: 048
     Dates: start: 20000719
  4. ENALAPRIL [Concomitant]
     Route: 048
     Dates: start: 20020119
  5. WARFARIN [Concomitant]
     Route: 048
     Dates: start: 20020102

REACTIONS (2)
  - CRYING [None]
  - FEELING ABNORMAL [None]
